FAERS Safety Report 23858548 (Version 1)
Quarter: 2024Q2

REPORT INFORMATION
  Report Type: Spontaneous
  Country: US (occurrence: None)
  Receive Date: 20240514
  Receipt Date: 20240514
  Transmission Date: 20240716
  Serious: No
  Sender: FDA-Public Use
  Company Number: None

PATIENT
  Age: 76 Year
  Sex: Male
  Weight: 94.5 kg

DRUGS (5)
  1. XTANDI [Suspect]
     Active Substance: ENZALUTAMIDE
     Indication: Prostate cancer
     Dosage: ORAL
     Route: 048
     Dates: start: 20231018
  2. LOSARTAN [Concomitant]
     Active Substance: LOSARTAN
     Dates: start: 20240209
  3. prilosec [Concomitant]
     Dates: start: 20240209
  4. PANTOPRAZOLE [Concomitant]
     Dates: start: 20240209
  5. AMLODIPINE [Concomitant]
     Active Substance: AMLODIPINE BESYLATE
     Dates: start: 20240209

REACTIONS (1)
  - Weight increased [None]
